FAERS Safety Report 6707567-9 (Version None)
Quarter: 2010Q2

REPORT INFORMATION
  Report Type: 
  Country: None (occurrence: None)
  Receive Date: 20100503
  Receipt Date: 20100421
  Transmission Date: 20101027
  Serious: Yes (Hospitalization, Other)
  Sender: FDA-Public Use
  Company Number: US-ELI_LILLY_AND_COMPANY-US201003007213

PATIENT
  Sex: Female

DRUGS (2)
  1. FORTEO [Suspect]
     Indication: OSTEOPOROSIS
     Dosage: 20 UG, DAILY (1/D)
  2. CALCIUM [Concomitant]
     Dosage: 1200 MG, DAILY (1/D)

REACTIONS (5)
  - BRONCHIAL DISORDER [None]
  - DIZZINESS [None]
  - EMPHYSEMA [None]
  - INJECTION SITE HAEMATOMA [None]
  - RECTAL HAEMORRHAGE [None]
